FAERS Safety Report 5415815-0 (Version None)
Quarter: 2007Q3

REPORT INFORMATION
  Report Type: 
  Country: None (occurrence: None)
  Receive Date: 20070815
  Receipt Date: 20070419
  Transmission Date: 20080115
  Serious: Yes (Hospitalization, Other)
  Sender: FDA-Public Use
  Company Number: US-PFIZER INC-2007058082

PATIENT
  Sex: Male
  Weight: 83.9 kg

DRUGS (3)
  1. CELEBREX [Suspect]
     Indication: BACK PAIN
     Route: 048
  2. CELEBREX [Suspect]
     Indication: PAIN MANAGEMENT
  3. CELEBREX [Suspect]
     Indication: ARTHRITIS

REACTIONS (2)
  - AMNESIA [None]
  - CEREBROVASCULAR ACCIDENT [None]
